FAERS Safety Report 19727118 (Version 1)
Quarter: 2021Q3

REPORT INFORMATION
  Report Type: Spontaneous
  Country: US (occurrence: US)
  Receive Date: 20210819
  Receipt Date: 20210819
  Transmission Date: 20211014
  Serious: Yes (Other)
  Sender: FDA-Public Use
  Company Number: NVSC2021US186391

PATIENT
  Age: 70 Year
  Sex: Male

DRUGS (2)
  1. RANITIDINE. [Suspect]
     Active Substance: RANITIDINE
     Indication: BLOOD URINE PRESENT
     Dosage: 150 MG, QD
     Route: 065
     Dates: start: 200406, end: 202004
  2. RANITIDINE. [Suspect]
     Active Substance: RANITIDINE
     Indication: HAEMATURIA
     Dosage: 150 MG, QD
     Route: 065
     Dates: start: 200406, end: 202004

REACTIONS (3)
  - Incorrect dose administered [Unknown]
  - Bladder cancer [Recovering/Resolving]
  - Product use in unapproved indication [Unknown]

NARRATIVE: CASE EVENT DATE: 20120720
